FAERS Safety Report 6254704-9 (Version None)
Quarter: 2009Q3

REPORT INFORMATION
  Report Type: 
  Country: None (occurrence: None)
  Receive Date: 20090702
  Receipt Date: 20090626
  Transmission Date: 20100115
  Serious: Yes (Death, Hospitalization)
  Sender: FDA-Public Use
  Company Number: US-GILEAD-2009-0022501

PATIENT
  Sex: Female
  Weight: 101.24 kg

DRUGS (8)
  1. LETAIRIS [Suspect]
     Indication: PULMONARY ARTERIAL HYPERTENSION
     Dates: start: 20080801, end: 20090606
  2. EPOPROSTENOL [Concomitant]
  3. SILDENAFIL CITRATE [Concomitant]
  4. LASIX [Concomitant]
  5. ZAROXOLYN [Concomitant]
  6. POTASSIUM CHLORIDE [Concomitant]
  7. LYRICA [Concomitant]
  8. ENABLEX [Concomitant]

REACTIONS (1)
  - PULMONARY HYPERTENSION [None]
